FAERS Safety Report 13664918 (Version 1)
Quarter: 2017Q2

REPORT INFORMATION
  Report Type: Spontaneous
  Country: US (occurrence: US)
  Receive Date: 20170619
  Receipt Date: 20170619
  Transmission Date: 20170830
  Serious: No
  Sender: FDA-Public Use
  Company Number: US-ELI_LILLY_AND_COMPANY-US201705012708

PATIENT
  Sex: Female

DRUGS (1)
  1. HUMATROPE [Suspect]
     Active Substance: SOMATROPIN
     Indication: GROWTH FAILURE
     Dosage: 0.8 MG, DAILY
     Route: 058
     Dates: start: 20170501

REACTIONS (3)
  - Tension [Unknown]
  - Injection site pain [Recovered/Resolved]
  - Injection site bruising [Unknown]
